FAERS Safety Report 7054256-X (Version None)
Quarter: 2010Q4

REPORT INFORMATION
  Report Type: 
  Country: None (occurrence: None)
  Receive Date: 20101020
  Receipt Date: 20101008
  Transmission Date: 20110411
  Serious: Yes (Life-Threatening, Hospitalization, Other)
  Sender: FDA-Public Use
  Company Number: US-ACTELION-A-US2010-39197

PATIENT
  Sex: Male

DRUGS (2)
  1. BOSENTAN TABLET UNKNOWN US MG [Suspect]
     Indication: PULMONARY ARTERIAL HYPERTENSION
     Dosage: UNK MG, UNK
     Route: 048
     Dates: start: 20090430
  2. LASIX [Concomitant]

REACTIONS (5)
  - GASTRIC HAEMORRHAGE [None]
  - GASTROINTESTINAL ARTERIOVENOUS MALFORMATION [None]
  - OEDEMA [None]
  - PULMONARY OEDEMA [None]
  - WEIGHT INCREASED [None]
